FAERS Safety Report 4600656-4 (Version None)
Quarter: 2005Q2

REPORT INFORMATION
  Report Type: 
  Country: None (occurrence: None)
  Receive Date: 20050304
  Receipt Date: 20050218
  Transmission Date: 20051028
  Serious: Yes (Life-Threatening, Hospitalization)
  Sender: FDA-Public Use
  Company Number: 2005-DE-00101DE

PATIENT
  Age: 58 Year
  Sex: Male

DRUGS (4)
  1. VIRAMUNE [Suspect]
     Dosage: (200 MG) PO, ONCE
     Route: 048
  2. MITOMYCIN [Suspect]
     Dosage: PO,ONCE
     Route: 048
  3. VIREAD [Suspect]
     Dosage: PO
     Route: 048
  4. DISTRANEURIN (CLOMETHIAZOLE EDISILATE) (NR) [Suspect]
     Dosage: 125 ML (NR) PO
     Route: 048

REACTIONS (9)
  - COMA [None]
  - DRUG INEFFECTIVE [None]
  - FALL [None]
  - MIOSIS [None]
  - POLYSUBSTANCE ABUSE [None]
  - RESPIRATORY FAILURE [None]
  - SALIVARY HYPERSECRETION [None]
  - SOMNOLENCE [None]
  - SUICIDE ATTEMPT [None]
